FAERS Safety Report 16437232 (Version 2)
Quarter: 2021Q4

REPORT INFORMATION
  Report Type: Spontaneous
  Country: CA (occurrence: CA)
  Receive Date: 20190615
  Receipt Date: 20211112
  Transmission Date: 20220303
  Serious: Yes (Death, Other)
  Sender: FDA-Public Use
  Company Number: CA-AUROBINDO-AUR-APL-2019-032534

PATIENT

DRUGS (13)
  1. CLOPIDOGREL [Suspect]
     Active Substance: CLOPIDOGREL BISULFATE
     Indication: Antiplatelet therapy
     Dosage: UNK
     Route: 065
  2. CLOPIDOGREL [Suspect]
     Active Substance: CLOPIDOGREL BISULFATE
     Indication: Vascular stent thrombosis
  3. CLOPIDOGREL [Suspect]
     Active Substance: CLOPIDOGREL BISULFATE
     Indication: Prophylaxis
  4. CLOPIDOGREL [Suspect]
     Active Substance: CLOPIDOGREL BISULFATE
     Indication: Subarachnoid haemorrhage
  5. CLOPIDOGREL [Suspect]
     Active Substance: CLOPIDOGREL BISULFATE
     Indication: Antiplatelet therapy
     Dosage: UNK
     Route: 065
  6. ASPIRIN [Suspect]
     Active Substance: ASPIRIN
     Indication: Antiplatelet therapy
     Dosage: UNK
     Route: 065
  7. ASPIRIN [Suspect]
     Active Substance: ASPIRIN
     Indication: Prophylaxis
  8. ASPIRIN [Suspect]
     Active Substance: ASPIRIN
     Indication: Vascular stent thrombosis
  9. ASPIRIN [Suspect]
     Active Substance: ASPIRIN
     Indication: Subarachnoid haemorrhage
  10. HEPARIN [Suspect]
     Active Substance: HEPARIN SODIUM
     Indication: Cerebral infarction
     Dosage: 5000 INTERNATIONAL UNIT, TWO TIMES A DAY
     Route: 058
  11. HEPARIN [Suspect]
     Active Substance: HEPARIN SODIUM
     Indication: Thrombosis prophylaxis
  12. HEPARIN [Suspect]
     Active Substance: HEPARIN SODIUM
     Indication: Anticoagulant therapy
  13. HEPARIN [Suspect]
     Active Substance: HEPARIN SODIUM
     Indication: Subarachnoid haemorrhage

REACTIONS (4)
  - Cerebral haemorrhage [Fatal]
  - Haemorrhage intracranial [Fatal]
  - Ischaemic stroke [Fatal]
  - Haemorrhagic stroke [Fatal]
